FAERS Safety Report 20745531 (Version 3)
Quarter: 2022Q2

REPORT INFORMATION
  Report Type: Spontaneous
  Country: US (occurrence: US)
  Receive Date: 20220425
  Receipt Date: 20220503
  Transmission Date: 20220721
  Serious: No
  Sender: FDA-Public Use
  Company Number: US-PFIZER INC-202200611635

PATIENT
  Age: 60 Year
  Sex: Male
  Weight: 86 kg

DRUGS (6)
  1. XANAX [Suspect]
     Active Substance: ALPRAZOLAM
     Dosage: UNK
  2. GLASSIA [Suspect]
     Active Substance: .ALPHA.1-PROTEINASE INHIBITOR HUMAN
     Indication: Alpha-1 antitrypsin deficiency
     Dosage: 60 MG/KG, WEEKLY
     Route: 042
     Dates: start: 20200404
  3. METFORMIN [Concomitant]
     Active Substance: METFORMIN HYDROCHLORIDE
     Indication: Diabetes mellitus
     Dosage: UNK
  4. FARXIGA [Concomitant]
     Active Substance: DAPAGLIFLOZIN PROPANEDIOL
     Indication: Diabetes mellitus
     Dosage: UNK
  5. GLIPIZIDE [Concomitant]
     Active Substance: GLIPIZIDE
     Indication: Diabetes mellitus
     Dosage: UNK
  6. GABAPENTIN [Concomitant]
     Active Substance: GABAPENTIN
     Dosage: UNK

REACTIONS (7)
  - Drug ineffective [Unknown]
  - Disorientation [Unknown]
  - Abdominal discomfort [Unknown]
  - Anxiety [Unknown]
  - Somnolence [Unknown]
  - Fatigue [Unknown]
  - Lung disorder [Unknown]

NARRATIVE: CASE EVENT DATE: 20200523
